APPROVED DRUG PRODUCT: PAROXETINE HYDROCHLORIDE
Active Ingredient: PAROXETINE HYDROCHLORIDE
Strength: EQ 30MG BASE
Dosage Form/Route: TABLET;ORAL
Application: A075566 | Product #003
Applicant: UPSHER SMITH LABORATORIES LLC
Approved: Mar 8, 2004 | RLD: No | RS: No | Type: DISCN